FAERS Safety Report 4349113-3 (Version None)
Quarter: 2004Q2

REPORT INFORMATION
  Report Type: 
  Country: None (occurrence: None)
  Receive Date: 20040427
  Receipt Date: 20040427
  Transmission Date: 20050107
  Serious: Yes (Life-Threatening, Hospitalization, Disabling)
  Sender: FDA-Public Use
  Company Number: None

PATIENT
  Sex: Male
  Weight: 112 kg

DRUGS (2)
  1. AMEVIVE [Suspect]
     Indication: PSORIASIS
     Dosage: EVERY WEEK
     Dates: start: 20040405, end: 20040405
  2. AMEVIVE [Suspect]
     Indication: PSORIASIS
     Dosage: EVERY WEEK
     Dates: start: 20040412, end: 20040412

REACTIONS (9)
  - ARM AMPUTATION [None]
  - DISSEMINATED INTRAVASCULAR COAGULATION [None]
  - HAEMODIALYSIS [None]
  - HYPOTENSION [None]
  - IMMUNOSUPPRESSION [None]
  - LEG AMPUTATION [None]
  - PERIPHERAL ISCHAEMIA [None]
  - RENAL FAILURE [None]
  - SEPTIC SHOCK [None]
